FAERS Safety Report 10190444 (Version 2)
Quarter: 2014Q2

REPORT INFORMATION
  Report Type: Spontaneous
  Country: DE (occurrence: DE)
  Receive Date: 20140522
  Receipt Date: 20140522
  Transmission Date: 20141212
  Serious: Yes (Other)
  Sender: FDA-Public Use
  Company Number: DE-009507513-1405DEU004989

PATIENT
  Age: 37 Year
  Sex: Female

DRUGS (4)
  1. IMPLANON [Suspect]
     Indication: CONTRACEPTION
     Dosage: RIGHT ARM
     Route: 059
     Dates: start: 2002, end: 2005
  2. IMPLANON [Suspect]
     Dosage: RIGHT ARM
     Route: 058
     Dates: start: 2005, end: 2008
  3. IMPLANON [Suspect]
     Dosage: RIGHT ARM
     Route: 058
     Dates: start: 2008, end: 2011
  4. IMPLANON [Suspect]
     Dosage: LEFT ARM
     Route: 058
     Dates: start: 2011

REACTIONS (5)
  - Metrorrhagia [Recovered/Resolved]
  - Menstruation irregular [Recovered/Resolved]
  - Menstruation irregular [Recovered/Resolved]
  - Medical device complication [Recovered/Resolved]
  - Surgery [Recovered/Resolved]
